FAERS Safety Report 9502693 (Version 1)
Quarter: 2013Q1

REPORT INFORMATION
  Report Type: Spontaneous
  Country: US (occurrence: None)
  Receive Date: 20130107
  Receipt Date: 20130107
  Transmission Date: 20140127
  Serious: No
  Sender: FDA-Public Use
  Company Number: PHEH2012US021135

PATIENT
  Age: 44 Year
  Sex: Female
  Weight: 81.6 kg

DRUGS (4)
  1. GILENYA (FINGOLIMOD) CAPSULE [Suspect]
     Indication: MULTIPLE SCLEROSIS
     Route: 048
     Dates: start: 20121024
  2. FAMPRIDINE ( FAMPRIDINE) [Concomitant]
  3. FLUOXETINE ( FLUOXETINE) [Concomitant]
  4. TRAZODONE ( TRAZODONE) [Concomitant]

REACTIONS (1)
  - Fatigue [None]
